FAERS Safety Report 9255623 (Version 1)
Quarter: 2013Q2

REPORT INFORMATION
  Report Type: Spontaneous
  Country: US (occurrence: US)
  Receive Date: 20130425
  Receipt Date: 20130425
  Transmission Date: 20140414
  Serious: Yes (Other)
  Sender: FDA-Public Use
  Company Number: PHHY2013US038864

PATIENT
  Sex: Female

DRUGS (7)
  1. CARBOPLATIN [Suspect]
     Indication: OVARIAN CANCER
     Dosage: UNK UKN, UNK
  2. CARBOPLATIN [Suspect]
     Indication: OVARIAN CANCER RECURRENT
  3. PACLITAXEL [Suspect]
     Indication: OVARIAN CANCER
  4. GEMCITABINE [Suspect]
     Indication: OVARIAN CANCER
  5. PEGYLATED LIPOSOMAL DOXORUBICIN HYDROCHLORIDE [Suspect]
     Indication: OVARIAN CANCER
     Dosage: 880 MG/M2, OT (TOTAL CUMULATIVE)
     Dates: start: 200710, end: 200902
  6. ETOPOSIDE [Concomitant]
     Indication: OVARIAN CANCER
  7. TOPOTECAN [Concomitant]
     Indication: OVARIAN CANCER

REACTIONS (6)
  - Renal failure chronic [Recovering/Resolving]
  - Thrombotic microangiopathy [Unknown]
  - Hypertension [Unknown]
  - Ovarian cancer recurrent [Recovering/Resolving]
  - Ovarian cancer [Unknown]
  - Malignant neoplasm progression [Unknown]
